FAERS Safety Report 18799081 (Version 1)
Quarter: 2021Q1

REPORT INFORMATION
  Report Type: Spontaneous
  Country: US (occurrence: US)
  Receive Date: 20210127
  Receipt Date: 20210127
  Transmission Date: 20210419
  Serious: Yes (Other)
  Sender: FDA-Public Use
  Company Number: None

PATIENT
  Age: 11 Month
  Sex: Male
  Weight: 10.35 kg

DRUGS (2)
  1. MAXIMUM STRENGTH DIAPER RASH [Suspect]
     Active Substance: ZINC OXIDE
     Indication: DERMATITIS DIAPER
     Route: 062
     Dates: start: 20201215, end: 20210127
  2. TYLENOL FOR BABIES [Concomitant]

REACTIONS (5)
  - Skin burning sensation [None]
  - Rash erythematous [None]
  - Haemorrhage [None]
  - Crying [None]
  - Skin exfoliation [None]

NARRATIVE: CASE EVENT DATE: 20210127
